FAERS Safety Report 25675047 (Version 2)
Quarter: 2025Q3

REPORT INFORMATION
  Report Type: Spontaneous
  Country: EU (occurrence: EU)
  Receive Date: 20250813
  Receipt Date: 20250821
  Transmission Date: 20251021
  Serious: Yes (Death, Other)
  Sender: SANOFI AVENTIS
  Company Number: None

PATIENT
  Age: 16 Year
  Sex: Male

DRUGS (15)
  1. METHOTREXATE [Suspect]
     Active Substance: METHOTREXATE
     Indication: Prophylaxis against graft versus host disease
     Dosage: 15 MG/M2, QD (ON DAY 1)
  2. METHOTREXATE [Suspect]
     Active Substance: METHOTREXATE
     Dosage: 10 MG/M2, QD (DAYS 3, 6, AND 11)
  3. FLUDARABINE PHOSPHATE [Suspect]
     Active Substance: FLUDARABINE PHOSPHATE
     Indication: Cystinosis
     Dosage: 30 MG/M2, QD (FROM DAY -7 TO DAY -3)
  4. ANTI-THYMOCYTE GLOBULIN (RABBIT) NOS [Suspect]
     Active Substance: LAPINE T-LYMPHOCYTE IMMUNE GLOBULIN
     Indication: Cystinosis
     Dosage: 2.5 MG/KG, QD (FROM DAY -3 TO DAY -1)
  5. ANTI-THYMOCYTE GLOBULIN (RABBIT) NOS [Suspect]
     Active Substance: LAPINE T-LYMPHOCYTE IMMUNE GLOBULIN
     Indication: Chronic graft versus host disease
  6. PREDNISOLONE [Suspect]
     Active Substance: PREDNISOLONE
     Indication: Chronic graft versus host disease
  7. MYCOPHENOLATE MOFETIL [Suspect]
     Active Substance: MYCOPHENOLATE MOFETIL
     Indication: Prophylaxis against graft versus host disease
     Dosage: 915 MG, TID
  8. FILGRASTIM [Suspect]
     Active Substance: FILGRASTIM
     Indication: Prophylaxis against graft versus host disease
     Dosage: 300 UG, QD (GIVEN ON DAYS 16, 17, AND 19)
  9. SIROLIMUS [Suspect]
     Active Substance: SIROLIMUS
     Indication: Chronic graft versus host disease
  10. TACROLIMUS [Suspect]
     Active Substance: TACROLIMUS
     Indication: Prophylaxis against graft versus host disease
     Dosage: 2 MG, BID (TARGET TROUGH LEVELS 5?10 NG/ML)
  11. METHYLPREDNISOLONE [Suspect]
     Active Substance: METHYLPREDNISOLONE
     Indication: Adenovirus reactivation
     Dosage: 2 MG/KG, QD
  12. THIOTEPA [Suspect]
     Active Substance: THIOTEPA
     Indication: Cystinosis
     Dosage: 10 MG/KG, QD (ON DAY -4)
  13. TREOSULFAN [Suspect]
     Active Substance: TREOSULFAN
     Indication: Cystinosis
     Dosage: 14 G/M2, QD FROM DAY -7 TO DAY -5)
  14. AZATHIOPRINE [Suspect]
     Active Substance: AZATHIOPRINE
     Indication: Chronic graft versus host disease
  15. CYCLOSPORINE [Suspect]
     Active Substance: CYCLOSPORINE
     Indication: Chronic graft versus host disease

REACTIONS (7)
  - Pneumonia pseudomonal [Fatal]
  - Hypogammaglobulinaemia [Unknown]
  - Adenovirus reactivation [Unknown]
  - Pyrexia [Unknown]
  - Diarrhoea [Unknown]
  - Parvovirus B19 infection [Unknown]
  - Off label use [Unknown]
